FAERS Safety Report 7161333-1 (Version None)
Quarter: 2010Q4

REPORT INFORMATION
  Report Type: 
  Country: None (occurrence: None)
  Receive Date: 20101215
  Receipt Date: 20101209
  Transmission Date: 20110411
  Serious: Yes (Other)
  Sender: FDA-Public Use
  Company Number: DE-PFIZER INC-2010142368

PATIENT
  Sex: Female

DRUGS (1)
  1. AROMASIN [Suspect]
     Dosage: 1 DF, SINGLE
     Route: 048
     Dates: start: 20100101, end: 20100101

REACTIONS (10)
  - ANXIETY [None]
  - ARTHRALGIA [None]
  - ASTHENIA [None]
  - FATIGUE [None]
  - FLUSHING [None]
  - GASTROINTESTINAL HYPERMOTILITY [None]
  - MYALGIA [None]
  - SENSATION OF FOREIGN BODY [None]
  - TENDON PAIN [None]
  - TRICHOTILLOMANIA [None]
